FAERS Safety Report 11860892 (Version 1)
Quarter: 2015Q4

REPORT INFORMATION
  Report Type: Spontaneous
  Country: US (occurrence: GB)
  Receive Date: 20151222
  Receipt Date: 20151222
  Transmission Date: 20160305
  Serious: Yes (Other)
  Sender: FDA-Public Use
  Company Number: GB-FRI-1000081748

PATIENT
  Age: 52 Year
  Sex: Female

DRUGS (8)
  1. ASENAPINE [Suspect]
     Active Substance: ASENAPINE
     Indication: BIPOLAR DISORDER
     Dosage: 5 MG
     Route: 048
     Dates: start: 20151022, end: 20151105
  2. DEPAKOTE [Concomitant]
     Active Substance: DIVALPROEX SODIUM
  3. ZOPLICONE [Concomitant]
     Active Substance: ZOPICLONE
  4. ARIPIPRAZOLE. [Concomitant]
     Active Substance: ARIPIPRAZOLE
     Dates: start: 2015, end: 2015
  5. PROCYCLIDINE HYDROCHLORIDE [Concomitant]
     Active Substance: PROCYCLIDINE HYDROCHLORIDE
  6. LURASIDONE HYDROCHLORIDE [Concomitant]
     Active Substance: LURASIDONE HYDROCHLORIDE
     Dates: start: 2015, end: 2015
  7. PREGABALIN. [Concomitant]
     Active Substance: PREGABALIN
  8. VALPROATE SODIUM. [Concomitant]
     Active Substance: VALPROATE SODIUM

REACTIONS (1)
  - Dyspnoea [Recovered/Resolved]

NARRATIVE: CASE EVENT DATE: 20151022
